FAERS Safety Report 16103616 (Version 1)
Quarter: 2019Q1

REPORT INFORMATION
  Report Type: Spontaneous
  Country: US (occurrence: US)
  Receive Date: 20190322
  Receipt Date: 20190322
  Transmission Date: 20190418
  Serious: No
  Sender: FDA-Public Use
  Company Number: US-TEVA-2019-US-1018235

PATIENT

DRUGS (1)
  1. MONONESSA,0.250 MG / 0.035 MG GENERIC [Suspect]
     Active Substance: ETHINYL ESTRADIOL\NORGESTIMATE
     Dosage: NORGESTIMATE: 0.250 MG  AND ETHINYL ESTRADIOL: 0.035 MG

REACTIONS (1)
  - Drug ineffective [Unknown]
